FAERS Safety Report 8784517 (Version 1)
Quarter: 2012Q4

REPORT INFORMATION
  Report Type: 
  Country: DE (occurrence: DE)
  Receive Date: 20120913
  Receipt Date: 20120913
  Transmission Date: 20130627
  Serious: Yes (Death)
  Sender: FDA-Public Use
  Company Number: DE-MYLANLABS-2012S1018378

PATIENT
  Age: 89 Year
  Sex: Male

DRUGS (18)
  1. HALOPERIDOL [Suspect]
     Dosage: 5mg daily; decreased to 3mg daily on d6
     Route: 065
  2. HALOPERIDOL [Suspect]
     Dosage: 3mg daily from d6; decreased to 2.5mg daily on d8
     Route: 065
  3. HALOPERIDOL [Suspect]
     Dosage: 2.5mg daily from d8
     Route: 065
  4. RISPERIDONE [Suspect]
     Dosage: possibly received 1.5mg daily prior to admission; then 1mg daily
     Route: 065
  5. RISPERIDONE [Suspect]
     Dosage: 1mg daily on admission; increased to 1.5mg on d8
     Route: 065
  6. RISPERIDONE [Suspect]
     Dosage: 1.5mg daily from d8
     Route: 065
  7. MELPERONE [Suspect]
     Dosage: 25-50mg 4x daily as needed; later 250mg daily or 6 x 25mg as needed
     Route: 065
  8. MELPERONE [Suspect]
     Dosage: 250mg daily or up to 6 x 25mg as needed
     Route: 065
  9. ALFUZOSIN [Suspect]
     Dosage: 10mg daily
     Route: 065
  10. GALANTAMINE [Suspect]
     Dosage: 16mg daily
     Route: 065
  11. CAPTOPRIL [Concomitant]
     Dosage: 50mg daily
     Route: 065
  12. HYDROCHLOROTHIAZIDE [Concomitant]
     Dosage: 25mg daily
     Route: 065
  13. BISOPROLOL [Concomitant]
     Dosage: 5mg daily
     Route: 065
  14. ISOSORBIDE DINITRATE [Concomitant]
     Dosage: 120mg daily
     Route: 065
  15. ASPIRIN [Concomitant]
     Dosage: 100mg daily
     Route: 065
  16. LORAZEPAM [Concomitant]
     Dosage: up to 2mg daily
     Route: 065
  17. OXAZEPAM [Concomitant]
     Indication: CIRCADIAN RHYTHM SLEEP DISORDER
     Dosage: 20mg on d1; then 15mg daily from d2
     Route: 065
  18. OXAZEPAM [Concomitant]
     Indication: CIRCADIAN RHYTHM SLEEP DISORDER
     Dosage: 15mg daily from d2
     Route: 065

REACTIONS (1)
  - Sudden death [Fatal]
